FAERS Safety Report 25388747 (Version 1)
Quarter: 2025Q2

REPORT INFORMATION
  Report Type: Report from Study
  Country: CA (occurrence: CA)
  Receive Date: 20250603
  Receipt Date: 20250603
  Transmission Date: 20250716
  Serious: Yes (Other)
  Sender: TAKEDA
  Company Number: CA-TAKEDA-2025TUS049654

PATIENT
  Sex: Female

DRUGS (2)
  1. VEDOLIZUMAB [Suspect]
     Active Substance: VEDOLIZUMAB
     Indication: Colitis ulcerative
  2. MERCAPTOPURINE [Concomitant]
     Active Substance: MERCAPTOPURINE

REACTIONS (3)
  - Loss of consciousness [Recovered/Resolved]
  - Asthenia [Recovered/Resolved]
  - Nausea [Recovered/Resolved]
